FAERS Safety Report 5644501-7 (Version None)
Quarter: 2008Q1

REPORT INFORMATION
  Report Type: 
  Country: None (occurrence: None)
  Receive Date: 20080229
  Receipt Date: 20070125
  Transmission Date: 20080703
  Serious: No
  Sender: FDA-Public Use
  Company Number: A0637015A

PATIENT
  Age: 50 Year
  Sex: Male

DRUGS (4)
  1. VALTREX [Suspect]
     Indication: GENITAL HERPES
     Route: 048
     Dates: start: 20061101, end: 20070124
  2. TAGAMET [Concomitant]
  3. ALLEGRA [Concomitant]
  4. PRILOSEC [Concomitant]

REACTIONS (2)
  - OEDEMA PERIPHERAL [None]
  - RASH [None]
